FAERS Safety Report 4631524-X (Version None)
Quarter: 2005Q2

REPORT INFORMATION
  Report Type: 
  Country: None (occurrence: None)
  Receive Date: 20050407
  Receipt Date: 20050323
  Transmission Date: 20051028
  Serious: Yes (Death)
  Sender: FDA-Public Use
  Company Number: AZAUS200400228

PATIENT
  Age: 78 Year
  Sex: Male
  Weight: 66.2 kg

DRUGS (4)
  1. VIDAZA [Suspect]
     Indication: ACUTE MYELOID LEUKAEMIA
     Dosage: 75 MG/M2 (135 MG), SUBCUTANEOUS
     Route: 058
     Dates: start: 20041127, end: 20041129
  2. ASPIRIN [Concomitant]
  3. HYDROCHLOROTHIAZIDE [Concomitant]
  4. POTASSIUM CHLORIDE [Concomitant]

REACTIONS (16)
  - ANION GAP INCREASED [None]
  - ATRIAL TACHYCARDIA [None]
  - BLOOD BICARBONATE DECREASED [None]
  - BLOOD CREATININE INCREASED [None]
  - BLOOD PH DECREASED [None]
  - BLOOD POTASSIUM INCREASED [None]
  - ELECTROCARDIOGRAM ST SEGMENT DEPRESSION [None]
  - HAEMATOCRIT DECREASED [None]
  - HEART RATE DECREASED [None]
  - HYPOTENSION [None]
  - INTERNATIONAL NORMALISED RATIO INCREASED [None]
  - MYOCARDIAL INFARCTION [None]
  - PLATELET COUNT DECREASED [None]
  - SPLENIC RUPTURE [None]
  - SPLENOMEGALY [None]
  - WHITE BLOOD CELL COUNT INCREASED [None]
